FAERS Safety Report 8832274 (Version 4)
Quarter: 2013Q4

REPORT INFORMATION
  Report Type: Report from Study
  Country: JP (occurrence: JP)
  Receive Date: 20121009
  Receipt Date: 20131121
  Transmission Date: 20140711
  Serious: Yes (Hospitalization, Other)
  Sender: FDA-Public Use
  Company Number: JP-VERTEX PHARMACEUTICAL INC.-AE-2012-004794

PATIENT
  Age: 64 Year
  Sex: Male

DRUGS (15)
  1. VX-950 (TELAPREVIR) [Suspect]
     Indication: CHRONIC HEPATITIS C
     Dosage: 1500 MG, QD
     Route: 048
     Dates: start: 20120321, end: 20120613
  2. RIBAVIRIN [Suspect]
     Indication: CHRONIC HEPATITIS C
     Dosage: 600 MG, QD
     Route: 048
     Dates: start: 20120321, end: 20120423
  3. RIBAVIRIN [Suspect]
     Dosage: 200 MG, QD
     Route: 048
     Dates: start: 20120423, end: 20120501
  4. RIBAVIRIN [Suspect]
     Dosage: 200 MG, QOD
     Route: 048
     Dates: start: 20120502, end: 20120522
  5. RIBAVIRIN [Suspect]
     Dosage: 200 MG, QOD
     Route: 048
     Dates: start: 20120627, end: 20120829
  6. RIBAVIRIN [Suspect]
     Dosage: 200 MG, QOD
     Route: 048
     Dates: start: 20120829, end: 20120904
  7. PEGINTERFERON ALFA-2B [Suspect]
     Indication: CHRONIC HEPATITIS C
     Dosage: 1.5 ?G/KG, QW
     Route: 058
     Dates: start: 20120321, end: 20120829
  8. URDESTON [Concomitant]
     Dosage: 600 MG, QD
     Route: 048
  9. OMEPRAL [Concomitant]
     Dosage: 10 MG, QD
     Route: 048
  10. OLMETEC [Concomitant]
     Dosage: 20 MG, QD
     Route: 048
     Dates: end: 20120423
  11. JANUVIA [Concomitant]
     Dosage: 50 MG, QD
     Route: 048
  12. VOGLIBOSE [Concomitant]
     Dosage: 0.9 MG, QD
     Route: 048
  13. PROMAC [Concomitant]
     Dosage: 150 MG, QD
     Route: 048
  14. GLYCORAN [Concomitant]
     Dosage: 750 MG, QD
     Route: 048
  15. BUTIKINON [Concomitant]
     Dosage: 300 MG, QD
     Route: 048

REACTIONS (4)
  - Loss of consciousness [Recovered/Resolved]
  - Loss of consciousness [Recovered/Resolved]
  - Loss of consciousness [Recovered/Resolved]
  - Dermatitis exfoliative [Recovered/Resolved]
